FAERS Safety Report 5239773-7 (Version None)
Quarter: 2007Q1

REPORT INFORMATION
  Report Type: 
  Country: None (occurrence: None)
  Receive Date: 20070216
  Receipt Date: 20070206
  Transmission Date: 20070707
  Serious: Yes (Other)
  Sender: FDA-Public Use
  Company Number: FR-ELI_LILLY_AND_COMPANY-FR200702001456

PATIENT
  Age: 57 Year
  Sex: Female

DRUGS (4)
  1. ALIMTA [Suspect]
     Indication: NON-SMALL CELL LUNG CANCER
     Dosage: UNK, UNKNOWN
     Route: 042
  2. CORTICOSTEROID NOS [Concomitant]
     Indication: SUPPLEMENTATION THERAPY
     Route: 065
  3. FOLIC ACID [Concomitant]
     Indication: VITAMIN SUPPLEMENTATION
     Route: 048
  4. VITAMIN B-12 [Concomitant]
     Indication: VITAMIN SUPPLEMENTATION
     Route: 030

REACTIONS (3)
  - INTERSTITIAL LUNG DISEASE [None]
  - SKIN HYPERPIGMENTATION [None]
  - URTICARIA GENERALISED [None]
